FAERS Safety Report 7204808-9 (Version None)
Quarter: 2010Q4

REPORT INFORMATION
  Report Type: 
  Country: None (occurrence: None)
  Receive Date: 20101230
  Receipt Date: 20101217
  Transmission Date: 20110411
  Serious: Yes (Other)
  Sender: FDA-Public Use
  Company Number: US-PFIZER INC-2007069564

PATIENT
  Age: 74 Year
  Sex: Female
  Weight: 50 kg

DRUGS (8)
  1. LYRICA [Suspect]
     Indication: POST HERPETIC NEURALGIA
     Dosage: 75 MG, 2X/DAY
     Route: 048
     Dates: start: 20060401, end: 20101201
  2. LYRICA [Suspect]
     Indication: HERPES ZOSTER
  3. HERBAL PREPARATION [Suspect]
     Indication: POST HERPETIC NEURALGIA
     Dosage: UNK
     Dates: start: 20070801, end: 20070801
  4. ACTONEL [Concomitant]
     Dosage: UNK
  5. LEVOXYL [Concomitant]
     Dosage: UNK
  6. ESTRADIOL [Concomitant]
     Dosage: UNK
  7. CALCIUM [Concomitant]
     Dosage: UNK
  8. MECLIZINE [Concomitant]
     Dosage: UNK

REACTIONS (20)
  - AMNESIA [None]
  - APPETITE DISORDER [None]
  - ASTHENIA [None]
  - BALANCE DISORDER [None]
  - CHILLS [None]
  - DIZZINESS [None]
  - DRUG INEFFECTIVE [None]
  - EAR INFECTION [None]
  - EYE PAIN [None]
  - IMPAIRED DRIVING ABILITY [None]
  - NAUSEA [None]
  - NIGHT SWEATS [None]
  - OSTEOARTHRITIS [None]
  - PALPITATIONS [None]
  - POLLAKIURIA [None]
  - SOMNOLENCE [None]
  - THINKING ABNORMAL [None]
  - URINE OUTPUT INCREASED [None]
  - VISION BLURRED [None]
  - WEIGHT DECREASED [None]
